FAERS Safety Report 4739824-X (Version None)
Quarter: 2005Q3

REPORT INFORMATION
  Report Type: 
  Country: None (occurrence: None)
  Receive Date: 20050810
  Receipt Date: 20050512
  Transmission Date: 20060218
  Serious: No
  Sender: FDA-Public Use
  Company Number: US-GLAXOSMITHKLINE-A0559025A

PATIENT
  Sex: Female

DRUGS (2)
  1. PAXIL [Suspect]
     Indication: PANIC ATTACK
     Route: 048
  2. WELLBUTRIN XL [Suspect]
     Indication: PANIC ATTACK
     Route: 048

REACTIONS (4)
  - NERVOUSNESS [None]
  - PANIC REACTION [None]
  - TREMOR [None]
  - WEIGHT INCREASED [None]
